FAERS Safety Report 5494684-7 (Version None)
Quarter: 2007Q4

REPORT INFORMATION
  Report Type: 
  Country: None (occurrence: None)
  Receive Date: 20071023
  Receipt Date: 20071023
  Transmission Date: 20080405
  Serious: Yes (Other)
  Sender: FDA-Public Use
  Company Number: None

PATIENT
  Age: 57 Year
  Sex: Female
  Weight: 57.1532 kg

DRUGS (2)
  1. LEVAQUIN [Suspect]
     Indication: CROHN'S DISEASE
     Dosage: 375 MG DAILY PO
     Route: 048
     Dates: start: 20070419, end: 20070511
  2. LEVAQUIN [Suspect]
     Indication: DIVERTICULITIS
     Dosage: 375 MG DAILY PO
     Route: 048
     Dates: start: 20070419, end: 20070511

REACTIONS (3)
  - INJURY [None]
  - MYALGIA [None]
  - TENDON DISORDER [None]
